FAERS Safety Report 7035562-1 (Version None)
Quarter: 2010Q4

REPORT INFORMATION
  Report Type: 
  Country: None (occurrence: None)
  Receive Date: 20101008
  Receipt Date: 20100930
  Transmission Date: 20110411
  Serious: Yes (Other)
  Sender: FDA-Public Use
  Company Number: DE-ROXANE LABORATORIES, INC.-2010-RO-01297RO

PATIENT
  Age: 11 Year
  Sex: Female

DRUGS (3)
  1. LAMOTRIGINE [Suspect]
     Indication: EPILEPSY
  2. LAMOTRIGINE DESITIN [Suspect]
     Indication: EPILEPSY
     Dosage: 100 MG
  3. LAMOTRIGINE NEURAXPHARM [Suspect]
     Indication: EPILEPSY
     Dosage: 100 MG

REACTIONS (2)
  - AURA [None]
  - PARTIAL SEIZURES [None]
